FAERS Safety Report 7736812-6 (Version None)
Quarter: 2011Q3

REPORT INFORMATION
  Report Type: 
  Country: None (occurrence: None)
  Receive Date: 20110908
  Receipt Date: 20110908
  Transmission Date: 20111222
  Serious: No
  Sender: FDA-Public Use
  Company Number: None

PATIENT

DRUGS (1)
  1. CHLORAPREP [Suspect]
     Indication: INFECTION PROPHYLAXIS

REACTIONS (2)
  - SCRATCH [None]
  - INJURY ASSOCIATED WITH DEVICE [None]
